FAERS Safety Report 6797276-2 (Version None)
Quarter: 2010Q2

REPORT INFORMATION
  Report Type: 
  Country: None (occurrence: None)
  Receive Date: 20100621
  Receipt Date: 20100608
  Transmission Date: 20101027
  Serious: No
  Sender: FDA-Public Use
  Company Number: B0659423A

PATIENT
  Age: 28 Year
  Sex: Male

DRUGS (11)
  1. ETOPOSIDE [Suspect]
     Indication: TERATOMA OF TESTIS
  2. MELPHALAN HYDROCHLORIDE [Suspect]
     Indication: STEM CELL TRANSPLANT
     Dates: start: 20091201
  3. PREDNISOLONE [Suspect]
     Indication: ACUTE GRAFT VERSUS HOST DISEASE
  4. CISPLATIN [Suspect]
     Indication: TERATOMA OF TESTIS
  5. BLEOMYCIN (FORMULATION UNKNOWN) (BLEOMYCIN) [Suspect]
     Indication: TERATOMA OF TESTIS
  6. CYTARABINE (FORMULATION UNKNOWN) (CYTARABINE) [Suspect]
     Indication: ACUTE MYELOID LEUKAEMIA
  7. DAUNORUBICIN (FORMULATION UNKNOWN) (GENERIC) (DAUNORUBICIN) [Suspect]
     Indication: ACUTE MYELOID LEUKAEMIA
  8. CYCLOPHOSPHAMIDE [Suspect]
     Indication: ALLOGENIC BONE MARROW TRANSPLANTATION THERAPY
  9. RADIOTHERAPY (FORMULATION UNKNOWN) (RADIOTHERAPY) [Suspect]
     Indication: ALLOGENIC BONE MARROW TRANSPLANTATION THERAPY
  10. CYCLOSPORINE [Suspect]
     Indication: ACUTE GRAFT VERSUS HOST DISEASE
     Dates: end: 20030201
  11. FLUDARABINE PHOSPHATE [Suspect]
     Indication: ACUTE MYELOID LEUKAEMIA
     Dates: start: 19991101

REACTIONS (9)
  - ACUTE GRAFT VERSUS HOST DISEASE [None]
  - ACUTE MYELOID LEUKAEMIA [None]
  - BONE MARROW TRANSPLANT [None]
  - CHRONIC GRAFT VERSUS HOST DISEASE [None]
  - NEOPLASM SKIN [None]
  - OESOPHAGEAL SQUAMOUS CELL CARCINOMA [None]
  - PHOTOSENSITIVITY REACTION [None]
  - POROKERATOSIS [None]
  - SWEAT GLAND TUMOUR [None]
